FAERS Safety Report 6005983-4 (Version None)
Quarter: 2008Q4

REPORT INFORMATION
  Report Type: 
  Country: None (occurrence: None)
  Receive Date: 20081217
  Receipt Date: 20081215
  Transmission Date: 20090506
  Serious: Yes (Death, Other)
  Sender: FDA-Public Use
  Company Number: PHBS2008GB06671

PATIENT
  Age: 24 Month
  Sex: Female

DRUGS (5)
  1. CYCLOSPORINE [Suspect]
     Indication: CORD BLOOD TRANSPLANT THERAPY
  2. PREDNISOLONE [Concomitant]
     Dosage: UNK
  3. BUSULFAN [Concomitant]
  4. CYCLOPHOSPHAMIDE [Concomitant]
     Dosage: 200 MG/KG/DAY
  5. LARONIDASE [Concomitant]
     Indication: STEM CELL TRANSPLANT

REACTIONS (2)
  - ADENOVIRUS INFECTION [None]
  - TRANSPLANT FAILURE [None]
